APPROVED DRUG PRODUCT: CABENUVA KIT
Active Ingredient: CABOTEGRAVIR; RILPIVIRINE
Strength: 600MG/3ML (200MG/ML);900MG/3ML (300MG/ML)
Dosage Form/Route: SUSPENSION, EXTENDED RELEASE;INTRAMUSCULAR
Application: N212888 | Product #002
Applicant: VIIV HEALTHCARE CO
Approved: Jan 21, 2021 | RLD: Yes | RS: Yes | Type: RX

PATENTS:
Patent 12178815 | Expires: Jul 18, 2038
Patent 12138264 | Expires: Sep 15, 2031
Patent RE50189 | Expires: Nov 27, 2031
Patent 11224597 | Expires: Sep 15, 2031
Patent 8410103 | Expires: Feb 4, 2031
Patent 11389447 | Expires: Jun 30, 2027
Patent 10927129 | Expires: Apr 28, 2026
Patent 11389448 | Expires: Apr 13, 2032

EXCLUSIVITY:
Code: NCE | Date: Jan 21, 2026